FAERS Safety Report 5879607-0 (Version None)
Quarter: 2008Q3

REPORT INFORMATION
  Report Type: 
  Country: None (occurrence: None)
  Receive Date: 20080912
  Receipt Date: 20080903
  Transmission Date: 20090109
  Serious: Yes (Hospitalization)
  Sender: FDA-Public Use
  Company Number: AU-JNJFOC-20080900020

PATIENT
  Age: 50 Year
  Sex: Male

DRUGS (6)
  1. TRAMADOL HCL [Suspect]
     Route: 048
  2. TRAMADOL HCL [Suspect]
     Indication: DRUG USE FOR UNKNOWN INDICATION
     Route: 048
  3. VENLAFAXINE HCL [Interacting]
     Indication: DEPRESSION
     Route: 065
  4. OXYCODONE HCL [Suspect]
     Indication: DRUG USE FOR UNKNOWN INDICATION
  5. FENTANYL [Suspect]
     Indication: DRUG USE FOR UNKNOWN INDICATION
  6. CLONIDINE [Concomitant]

REACTIONS (2)
  - DRUG INTERACTION [None]
  - SEROTONIN SYNDROME [None]
